FAERS Safety Report 25900584 (Version 1)
Quarter: 2025Q4

REPORT INFORMATION
  Report Type: Spontaneous
  Country: US (occurrence: None)
  Receive Date: 20251007
  Receipt Date: 20251007
  Transmission Date: 20260119
  Serious: Yes (Hospitalization)
  Sender: FDA-CTU
  Company Number: None

PATIENT
  Age: 43 Year
  Sex: Female

DRUGS (7)
  1. OCTAGAM IMMUNE GLOBULIN (HUMAN) [Suspect]
     Active Substance: HUMAN IMMUNOGLOBULIN G
     Indication: Immunodeficiency common variable
     Dosage: OTHER STRENGTH : 20GM/200ML;?OTHER FREQUENCY : EVERY 4 WEEKS;?
     Route: 042
     Dates: start: 20241117
  2. OCTAGAM IMMUNE GLOBULIN (HUMAN) [Suspect]
     Active Substance: HUMAN IMMUNOGLOBULIN G
     Indication: Immunodeficiency common variable
     Dosage: OTHER STRENGTH : 5GM/50ML;?OTHER FREQUENCY : EVERY 4 WEEKS;?
     Route: 042
     Dates: start: 20241117
  3. HEPARIN L/L FLUSH SYR (5ML) [Concomitant]
  4. ACETAMINOPHEN [Concomitant]
     Active Substance: ACETAMINOPHEN
  5. DEXAMETHASONE (1ML/VL) [Concomitant]
  6. SOD CHLOR POS STERILE F (10ML) [Concomitant]
  7. DIPHENHYDRAMINE SDV (1ML/VL) [Concomitant]

REACTIONS (2)
  - Shock haemorrhagic [None]
  - Bacteraemia [None]

NARRATIVE: CASE EVENT DATE: 20250703
